FAERS Safety Report 23086071 (Version 3)
Quarter: 2024Q1

REPORT INFORMATION
  Report Type: Spontaneous
  Country: US (occurrence: US)
  Receive Date: 20231019
  Receipt Date: 20240117
  Transmission Date: 20240410
  Serious: Yes (Death, Other)
  Sender: FDA-Public Use
  Company Number: US-BRISTOL-MYERS SQUIBB COMPANY-2023-149418

PATIENT
  Age: 67 Year
  Sex: Male
  Weight: 60.9 kg

DRUGS (2)
  1. OPDIVO [Suspect]
     Active Substance: NIVOLUMAB
     Indication: Nasopharyngeal cancer
     Dates: start: 20230911, end: 20230925
  2. YERVOY [Suspect]
     Active Substance: IPILIMUMAB
     Indication: Nasopharyngeal cancer
     Dates: start: 20230911

REACTIONS (3)
  - Off label use [Unknown]
  - Malignant neoplasm progression [Fatal]
  - COVID-19 pneumonia [Fatal]

NARRATIVE: CASE EVENT DATE: 20231013
